FAERS Safety Report 8937035 (Version 2)
Quarter: 2012Q4

REPORT INFORMATION
  Report Type: 
  Country: GB (occurrence: GB)
  Receive Date: 20121130
  Receipt Date: 20121203
  Transmission Date: 20130627
  Serious: Yes (Death, Other)
  Sender: FDA-Public Use
  Company Number: PHHY2012GB109376

PATIENT
  Age: 10 Month
  Sex: Male

DRUGS (3)
  1. DOCETAXEL [Suspect]
     Indication: HEPATOBLASTOMA
  2. CISPLATIN [Concomitant]
  3. CARBOPLATIN/DOXORUBICIN [Concomitant]

REACTIONS (2)
  - Cardiac arrest [Fatal]
  - Febrile neutropenia [Unknown]
